FAERS Safety Report 23439027 (Version 1)
Quarter: 2024Q1

REPORT INFORMATION
  Report Type: Spontaneous
  Country: US (occurrence: None)
  Receive Date: 20240124
  Receipt Date: 20240124
  Transmission Date: 20240410
  Serious: Yes (Death, Other)
  Sender: FDA-Public Use
  Company Number: 2024A017277

PATIENT
  Age: 85 Year
  Sex: Female

DRUGS (1)
  1. ANDEXXA [Suspect]
     Active Substance: ANDEXANET ALFA
     Indication: Anticoagulation drug level decreased
     Dosage: 880.0MG ONCE/SINGLE ADMINISTRATION
     Route: 040

REACTIONS (2)
  - Cerebrovascular accident [Fatal]
  - Acute myocardial infarction [Unknown]
